FAERS Safety Report 11179522 (Version 4)
Quarter: 2015Q3

REPORT INFORMATION
  Report Type: Spontaneous
  Country: US (occurrence: US)
  Receive Date: 20150611
  Receipt Date: 20150922
  Transmission Date: 20151125
  Serious: No
  Sender: FDA-Public Use
  Company Number: US-AMGEN-USASL2015056044

PATIENT
  Age: 61 Year
  Sex: Male

DRUGS (8)
  1. ENBREL [Suspect]
     Active Substance: ETANERCEPT
     Indication: RHEUMATOID ARTHRITIS
     Dosage: 50 MG, QWK
     Route: 065
     Dates: start: 201504
  2. METHOTREXATE [Concomitant]
     Active Substance: METHOTREXATE
     Dosage: UNK, 2.5 FOUR TABS THIS WEEK, 5 TABS NEXT WEEK, 6 TABS THE NEXT WEEK AND THEN STAY ON 6 TAGS WEEKLY
     Dates: start: 201506
  3. NIACIN. [Concomitant]
     Active Substance: NIACIN
     Dosage: UNK
  4. ALLOPURINOL. [Concomitant]
     Active Substance: ALLOPURINOL
     Dosage: UNK
  5. CENTRUM SILVER                     /02363801/ [Concomitant]
     Active Substance: VITAMINS
     Dosage: UNK
  6. PLAQUENIL [Concomitant]
     Active Substance: HYDROXYCHLOROQUINE SULFATE
     Dosage: UNK
  7. ENBREL [Suspect]
     Active Substance: ETANERCEPT
     Dosage: UNK
     Route: 065
  8. MEDROL [Concomitant]
     Active Substance: METHYLPREDNISOLONE
     Indication: JOINT SWELLING
     Dosage: 6 MG, QD

REACTIONS (11)
  - Pain [Not Recovered/Not Resolved]
  - Injection site injury [Unknown]
  - Confusional state [Unknown]
  - Device issue [Unknown]
  - Skin atrophy [Not Recovered/Not Resolved]
  - Incorrect product storage [Unknown]
  - Contusion [Unknown]
  - No therapeutic response [Unknown]
  - Mobility decreased [Not Recovered/Not Resolved]
  - Condition aggravated [Unknown]
  - Joint swelling [Not Recovered/Not Resolved]

NARRATIVE: CASE EVENT DATE: 2015
